FAERS Safety Report 19206092 (Version 1)
Quarter: 2021Q2

REPORT INFORMATION
  Report Type: Spontaneous
  Country: US (occurrence: US)
  Receive Date: 20210502
  Receipt Date: 20210502
  Transmission Date: 20210717
  Serious: No
  Sender: FDA-Public Use
  Company Number: None

PATIENT
  Age: 4 Month
  Sex: Male

DRUGS (1)
  1. SILDENAFIL SUS 10MG/ML [Suspect]
     Active Substance: SILDENAFIL
     Dosage: ?          OTHER FREQUENCY:QID;?
     Route: 048
     Dates: start: 20210501, end: 20210502

REACTIONS (2)
  - Product reconstitution quality issue [None]
  - Accidental overdose [None]

NARRATIVE: CASE EVENT DATE: 20210502
